FAERS Safety Report 8628727 (Version 2)
Quarter: 2015Q2

REPORT INFORMATION
  Report Type: Spontaneous
  Country: US (occurrence: US)
  Receive Date: 20120621
  Receipt Date: 20150519
  Transmission Date: 20150821
  Serious: Yes (Death, Other)
  Sender: FDA-Public Use
  Company Number: US-ASTRAZENECA-2011SE22355

PATIENT
  Age: 29557 Day
  Sex: Male
  Weight: 79.8 kg

DRUGS (1)
  1. SYMBICORT [Suspect]
     Active Substance: BUDESONIDE\FORMOTEROL FUMARATE DIHYDRATE
     Dosage: 80/4.5 MG, 2 PUFFS BID
     Route: 055

REACTIONS (4)
  - Asthma [Unknown]
  - Pneumonia [Fatal]
  - Post procedural complication [Unknown]
  - Sepsis [Fatal]

NARRATIVE: CASE EVENT DATE: 20150430
